FAERS Safety Report 16580984 (Version 1)
Quarter: 2019Q3

REPORT INFORMATION
  Report Type: Spontaneous
  Country: BR (occurrence: BR)
  Receive Date: 20190716
  Receipt Date: 20190716
  Transmission Date: 20191004
  Serious: Yes (Other)
  Sender: FDA-Public Use
  Company Number: BR-JNJFOC-20190706229

PATIENT
  Age: 82 Year
  Sex: Female

DRUGS (8)
  1. ATENOLOL. [Concomitant]
     Active Substance: ATENOLOL
  2. OMEPRAZOLE. [Concomitant]
     Active Substance: OMEPRAZOLE
  3. PURAN [Concomitant]
     Active Substance: LEVOTHYROXINE SODIUM
  4. DUROGESIC D-TRANS [Suspect]
     Active Substance: FENTANYL
     Indication: PAIN
     Dosage: PERFORMED THE EXCHANGE OF THE PATCH EVERY 72 HOURS
     Route: 062
     Dates: start: 20190623, end: 20190627
  5. LOSARTAN. [Concomitant]
     Active Substance: LOSARTAN
  6. APRESOLINA [Concomitant]
     Active Substance: HYDRALAZINE HYDROCHLORIDE
  7. MACRODANTIN [Concomitant]
     Active Substance: NITROFURANTOIN
  8. GABAPENTIN. [Concomitant]
     Active Substance: GABAPENTIN

REACTIONS (5)
  - Heart rate increased [Unknown]
  - Nausea [Recovered/Resolved]
  - Delirium [Unknown]
  - Dyspnoea [Unknown]
  - Hallucination [Unknown]

NARRATIVE: CASE EVENT DATE: 201906
